FAERS Safety Report 17018843 (Version 3)
Quarter: 2020Q1

REPORT INFORMATION
  Report Type: Spontaneous
  Country: US (occurrence: US)
  Receive Date: 20191112
  Receipt Date: 20200221
  Transmission Date: 20200409
  Serious: Yes (Hospitalization, Disabling, Other)
  Sender: FDA-Public Use
  Company Number: US-ABBVIE-19K-163-2996957-00

PATIENT
  Sex: Female
  Weight: 136.2 kg

DRUGS (8)
  1. LUPRON [Suspect]
     Active Substance: LEUPROLIDE ACETATE
     Indication: ENDOMETRIOSIS
     Dosage: SOLUTION; START DATE:- BETWEEN 1993 AND 1994
     Route: 030
  2. VITAMIN D [Concomitant]
     Active Substance: VITAMIN D NOS
     Indication: PRODUCT USED FOR UNKNOWN INDICATION
  3. VITAMIN B COMPLEX [Concomitant]
     Active Substance: CYANOCOBALAMIN\DEXPANTHENOL\NIACINAMIDE\PYRIDOXINE HYDROCHLORIDE\RIBOFLAVIN 5^-PHOSPHATE SODIUM\THIAMINE HYDROCHLORIDE\VITAMIN B COMPLEX
     Indication: PRODUCT USED FOR UNKNOWN INDICATION
  4. VITAMIN E [Concomitant]
     Active Substance: .ALPHA.-TOCOPHEROL
     Indication: PRODUCT USED FOR UNKNOWN INDICATION
  5. VITAMIN C [Concomitant]
     Active Substance: ASCORBIC ACID
     Indication: PRODUCT USED FOR UNKNOWN INDICATION
  6. OMEPRAZOLE. [Concomitant]
     Active Substance: OMEPRAZOLE
     Indication: GASTRIC DISORDER
  7. LUPRON [Suspect]
     Active Substance: LEUPROLIDE ACETATE
     Indication: ASSISTED FERTILISATION
  8. POTASSIUM [Concomitant]
     Active Substance: POTASSIUM
     Indication: PRODUCT USED FOR UNKNOWN INDICATION

REACTIONS (21)
  - Ligament sprain [Unknown]
  - Musculoskeletal stiffness [Unknown]
  - Lethargy [Unknown]
  - Fall [Unknown]
  - Fracture [Unknown]
  - Burning sensation [Unknown]
  - Joint instability [Unknown]
  - Gait disturbance [Unknown]
  - Onychoclasis [Unknown]
  - Hypertension [Unknown]
  - Off label use [Unknown]
  - Weight decreased [Unknown]
  - Spinal fracture [Unknown]
  - Balance disorder [Unknown]
  - Nerve injury [Unknown]
  - Unevaluable event [Unknown]
  - Seborrhoea [Unknown]
  - Ankle fracture [Unknown]
  - Chronic inflammatory demyelinating polyradiculoneuropathy [Unknown]
  - Physical disability [Unknown]
  - Hypoaesthesia [Unknown]

NARRATIVE: CASE EVENT DATE: 1998
